FAERS Safety Report 12350241 (Version 1)
Quarter: 2016Q2

REPORT INFORMATION
  Report Type: Spontaneous
  Country: US (occurrence: None)
  Receive Date: 20160509
  Receipt Date: 20160509
  Transmission Date: 20160815
  Serious: Yes (Disabling)
  Sender: FDA-Public Use
  Company Number: None

PATIENT
  Age: 60 Year
  Sex: Female
  Weight: 90.72 kg

DRUGS (7)
  1. WELLBUTRIN [Concomitant]
     Active Substance: BUPROPION HYDROCHLORIDE
  2. GABAPENTIN. [Concomitant]
     Active Substance: GABAPENTIN
  3. METOPROLOL. [Concomitant]
     Active Substance: METOPROLOL
  4. EXEMESTANE. [Concomitant]
     Active Substance: EXEMESTANE
  5. ANASTROZOLE. [Suspect]
     Active Substance: ANASTROZOLE
     Indication: BREAST CANCER
     Route: 048
     Dates: start: 20150801, end: 20160401
  6. VITAMIN D [Concomitant]
     Active Substance: CHOLECALCIFEROL
  7. LETRAZOLE [Suspect]
     Active Substance: LETROZOLE

REACTIONS (8)
  - Hypoaesthesia [None]
  - Swelling [None]
  - Nodule [None]
  - Carpal tunnel syndrome [None]
  - Peripheral coldness [None]
  - Myalgia [None]
  - Nervous system disorder [None]
  - Arthritis [None]

NARRATIVE: CASE EVENT DATE: 20160404
